FAERS Safety Report 12907241 (Version 1)
Quarter: 2016Q4

REPORT INFORMATION
  Report Type: Spontaneous
  Country: DE (occurrence: DE)
  Receive Date: 20161103
  Receipt Date: 20161103
  Transmission Date: 20170207
  Serious: Yes (Hospitalization)
  Sender: FDA-Public Use
  Company Number: PHHY2016DE130063

PATIENT
  Sex: Male

DRUGS (11)
  1. DILATREND [Suspect]
     Active Substance: CARVEDILOL
     Indication: HEART RATE
  2. RASILEZ [Suspect]
     Active Substance: ALISKIREN
     Indication: HYPERTENSION
     Dosage: 150 MG, QD
     Route: 048
  3. DILATREND [Suspect]
     Active Substance: CARVEDILOL
     Indication: TRANSIENT ISCHAEMIC ATTACK
  4. RASILEZ [Suspect]
     Active Substance: ALISKIREN
     Indication: TRANSIENT ISCHAEMIC ATTACK
  5. DILATREND [Suspect]
     Active Substance: CARVEDILOL
     Indication: ARTERIOSCLEROSIS CORONARY ARTERY
  6. SORTIS [Concomitant]
     Active Substance: ATORVASTATIN
     Indication: HYPERCHOLESTEROLAEMIA
     Dosage: 20 MG, QD
     Route: 065
  7. RASILEZ [Suspect]
     Active Substance: ALISKIREN
     Indication: ARTERIOSCLEROSIS CORONARY ARTERY
     Dosage: 150 MG, BID
     Route: 048
     Dates: start: 2015
  8. SYMBICORT [Concomitant]
     Active Substance: BUDESONIDE\FORMOTEROL FUMARATE DIHYDRATE
     Indication: CHRONIC OBSTRUCTIVE PULMONARY DISEASE
  9. SYMBICORT [Concomitant]
     Active Substance: BUDESONIDE\FORMOTEROL FUMARATE DIHYDRATE
     Indication: ASTHMA
     Dosage: 320/9
     Route: 065
  10. DILATREND [Suspect]
     Active Substance: CARVEDILOL
     Indication: HYPERTENSION
     Dosage: 0.5 DF, BID
     Route: 048
  11. AMLODIPIN [Concomitant]
     Active Substance: AMLODIPINE BESYLATE
     Indication: HYPERTENSION
     Dosage: 10 MG, QD
     Route: 065
     Dates: start: 201607

REACTIONS (4)
  - Chest pain [Recovered/Resolved]
  - Nocturnal dyspnoea [Recovered/Resolved]
  - Incorrect dose administered [Not Recovered/Not Resolved]
  - Dyspnoea [Recovered/Resolved]

NARRATIVE: CASE EVENT DATE: 2008
